FAERS Safety Report 6168577-6 (Version None)
Quarter: 2009Q2

REPORT INFORMATION
  Report Type: 
  Country: None (occurrence: None)
  Receive Date: 20090423
  Receipt Date: 20090410
  Transmission Date: 20091009
  Serious: Yes (Disabling)
  Sender: FDA-Public Use
  Company Number: APP200900206

PATIENT
  Age: 28 Year
  Sex: Female

DRUGS (8)
  1. SENSORCAINE [Suspect]
     Indication: MUSCULOSKELETAL PAIN
     Dosage: 150 ML, CONTINUOUS VIA PUMP, INTRA-ARTICULAR
     Route: 014
     Dates: start: 20031010
  2. BUPIVACAINE HYDROCHLORIDE AND EPINEPHRINE [Suspect]
     Indication: DRUG USE FOR UNKNOWN INDICATION
     Dates: start: 20031010
  3. PAINBUSTER PAIN PUMP [Suspect]
     Indication: MUSCULOSKELETAL PAIN
     Dates: start: 20031010
  4. PAINBUSTER PAIN PUMP [Suspect]
     Indication: MUSCULOSKELETAL PAIN
     Dates: start: 20040514
  5. MARCAINE HYDROCHLORIDE W/ EPINEPHRINE [Suspect]
     Indication: DRUG USE FOR UNKNOWN INDICATION
     Dosage: 150 ML, CONTINUOUS VIA PUMP, INTRA-ARTICULAR ; 17 ML
     Route: 014
     Dates: start: 20040514
  6. MARCAINE HYDROCHLORIDE W/ EPINEPHRINE [Suspect]
     Indication: MUSCULOSKELETAL PAIN
     Dosage: 150 ML, CONTINUOUS VIA PUMP, INTRA-ARTICULAR ; 17 ML
     Route: 014
     Dates: start: 20040514
  7. MARCAINE HYDROCHLORIDE W/ EPINEPHRINE [Suspect]
     Indication: DRUG USE FOR UNKNOWN INDICATION
     Dosage: 150 ML, CONTINUOUS VIA PUMP, INTRA-ARTICULAR ; 17 ML
     Route: 014
     Dates: start: 20040514
  8. MARCAINE HYDROCHLORIDE W/ EPINEPHRINE [Suspect]
     Indication: MUSCULOSKELETAL PAIN
     Dosage: 150 ML, CONTINUOUS VIA PUMP, INTRA-ARTICULAR ; 17 ML
     Route: 014
     Dates: start: 20040514

REACTIONS (5)
  - CHONDROLYSIS [None]
  - MUSCULOSKELETAL DISCOMFORT [None]
  - MUSCULOSKELETAL PAIN [None]
  - OSTEONECROSIS [None]
  - TENDONITIS [None]
